FAERS Safety Report 5801794-0 (Version None)
Quarter: 2008Q3

REPORT INFORMATION
  Report Type: 
  Country: None (occurrence: None)
  Receive Date: 20080702
  Receipt Date: 20080619
  Transmission Date: 20090109
  Serious: Yes (Hospitalization, Other)
  Sender: FDA-Public Use
  Company Number: POMP-1000006

PATIENT
  Age: 70 Year
  Sex: Male
  Weight: 67 kg

DRUGS (2)
  1. MYOZYME [Suspect]
     Indication: GLYCOGEN STORAGE DISEASE TYPE II
     Dosage: INTRAVENOUS; INTRAVENOUS
     Route: 042
     Dates: start: 20070608, end: 20071207
  2. MYOZYME [Suspect]
     Indication: GLYCOGEN STORAGE DISEASE TYPE II
     Dosage: INTRAVENOUS; INTRAVENOUS
     Route: 042
     Dates: start: 20080401

REACTIONS (6)
  - BACTERIAL INFECTION [None]
  - BLOOD CULTURE POSITIVE [None]
  - FIBROSIS [None]
  - INTERVERTEBRAL DISCITIS [None]
  - OSTEITIS [None]
  - STAPHYLOCOCCAL INFECTION [None]
